FAERS Safety Report 13698127 (Version 1)
Quarter: 2017Q2

REPORT INFORMATION
  Report Type: Report from Study
  Country: BR (occurrence: BR)
  Receive Date: 20170628
  Receipt Date: 20170628
  Transmission Date: 20170830
  Serious: Yes (Hospitalization)
  Sender: FDA-Public Use
  Company Number: PHHY2017BR092052

PATIENT
  Sex: Female
  Weight: 64 kg

DRUGS (1)
  1. DIOVAN AMLO FIX [Suspect]
     Active Substance: AMLODIPINE\VALSARTAN
     Indication: BLOOD PRESSURE INCREASED
     Dosage: 1 DF (AMLODIPINE 5 MG, VALSARTAN 160 MG), QD (IN THE MORNING)
     Route: 048

REACTIONS (5)
  - Kidney infection [Recovering/Resolving]
  - Renal mass [Recovering/Resolving]
  - Pancreatitis [Recovering/Resolving]
  - Renal disorder [Unknown]
  - Cholelithiasis [Recovered/Resolved]
